FAERS Safety Report 8785541 (Version 1)
Quarter: 2012Q4

REPORT INFORMATION
  Report Type: 
  Country: US (occurrence: US)
  Receive Date: 20120914
  Receipt Date: 20120914
  Transmission Date: 20130627
  Serious: No
  Sender: FDA-Public Use
  Company Number: US-PFIZER INC-2012223916

PATIENT
  Age: 64 Year
  Sex: Male
  Weight: 71.66 kg

DRUGS (6)
  1. CHANTIX [Suspect]
     Indication: SMOKING CESSATION THERAPY
     Dosage: UNK
  2. CHANTIX [Suspect]
     Dosage: UNK
  3. CHANTIX [Suspect]
     Dosage: UNK
     Dates: start: 20120910
  4. TRAZODONE [Concomitant]
     Indication: SLEEP DISORDER
     Dosage: 100 mg, daily
  5. ATENOLOL [Concomitant]
     Indication: HYPERTENSION
     Dosage: 25 mg, daily in the morning
  6. ACETYLSALICYLIC ACID [Concomitant]
     Dosage: UNK

REACTIONS (1)
  - Dizziness [Unknown]
